FAERS Safety Report 4375562-3 (Version None)
Quarter: 2004Q2

REPORT INFORMATION
  Report Type: 
  Country: None (occurrence: None)
  Receive Date: 20040610
  Receipt Date: 20040601
  Transmission Date: 20050107
  Serious: Yes (Other)
  Sender: FDA-Public Use
  Company Number: PHRM2004FR02004

PATIENT
  Age: 0 None
  Sex: Female

DRUGS (2)
  1. CLOZAPINE [Suspect]
     Indication: SCHIZOPHRENIA
     Dosage: 125 MG, DAILY
     Route: 048
  2. ALPRAZOLAM [Concomitant]
     Dosage: 0.25 MG, DAILY
     Route: 048

REACTIONS (5)
  - HAEMATOCRIT DECREASED [None]
  - HAEMOGLOBIN DECREASED [None]
  - IRON DEFICIENCY ANAEMIA [None]
  - MEAN CELL HAEMOGLOBIN DECREASED [None]
  - MEAN CELL VOLUME DECREASED [None]
